FAERS Safety Report 19399532 (Version 1)
Quarter: 2021Q2

REPORT INFORMATION
  Report Type: Spontaneous
  Country: US (occurrence: US)
  Receive Date: 20210610
  Receipt Date: 20210610
  Transmission Date: 20210717
  Serious: Yes (Hospitalization)
  Sender: FDA-Public Use
  Company Number: None

PATIENT
  Age: 74 Year
  Sex: Female
  Weight: 82.8 kg

DRUGS (15)
  1. ATOVASTIN [Concomitant]
  2. ZOFRAN [Concomitant]
     Active Substance: ONDANSETRON HYDROCHLORIDE
  3. BUPRENORPHINE. [Suspect]
     Active Substance: BUPRENORPHINE
     Indication: DRUG DEPENDENCE
     Dosage: ?          QUANTITY:1 TABLET(S);?
     Route: 060
     Dates: start: 20210318, end: 20210526
  4. PANTAPRASOLE [Concomitant]
  5. PROBIOTIC [Concomitant]
     Active Substance: PROBIOTICS NOS
  6. LISINIPRIL [Concomitant]
     Active Substance: LISINOPRIL
  7. SKELAXIN [Concomitant]
     Active Substance: METAXALONE
  8. CLONIDINE. [Concomitant]
     Active Substance: CLONIDINE
  9. TRAZODONE [Concomitant]
     Active Substance: TRAZODONE HYDROCHLORIDE
  10. GABAPENTIN. [Concomitant]
     Active Substance: GABAPENTIN
  11. VITAMIN B COMPLEX [Concomitant]
     Active Substance: CYANOCOBALAMIN\DEXPANTHENOL\NIACINAMIDE\PYRIDOXINE HYDROCHLORIDE\RIBOFLAVIN 5^-PHOSPHATE SODIUM\THIAMINE HYDROCHLORIDE\VITAMIN B COMPLEX
  12. MIRALAX [Concomitant]
     Active Substance: POLYETHYLENE GLYCOL 3350
  13. TUMERIC [Concomitant]
     Active Substance: HERBALS\TURMERIC
  14. OMEGA 3 [Concomitant]
     Active Substance: OMEGA-3 FATTY ACIDS
  15. ALEVE [Concomitant]
     Active Substance: NAPROXEN SODIUM

REACTIONS (9)
  - Dyspepsia [None]
  - Insomnia [None]
  - Vomiting [None]
  - Gastric disorder [None]
  - Nervousness [None]
  - Depressed level of consciousness [None]
  - Neurological symptom [None]
  - Nausea [None]
  - Dizziness [None]

NARRATIVE: CASE EVENT DATE: 20210401
